FAERS Safety Report 5650453-6 (Version None)
Quarter: 2008Q1

REPORT INFORMATION
  Report Type: 
  Country: None (occurrence: None)
  Receive Date: 20080303
  Receipt Date: 20080226
  Transmission Date: 20080703
  Serious: Yes (Hospitalization)
  Sender: FDA-Public Use
  Company Number: 2008SP002008

PATIENT
  Age: 27 Year
  Sex: Male
  Weight: 59 kg

DRUGS (3)
  1. PEG-INTRON [Suspect]
     Indication: HEPATITIS B
     Dosage: 60 MCG; QW; SC, 30 MCG; QW; SC, 60 MCG; QW; SC
     Route: 058
     Dates: start: 20080111, end: 20080125
  2. PEG-INTRON [Suspect]
     Indication: HEPATITIS B
     Dosage: 60 MCG; QW; SC, 30 MCG; QW; SC, 60 MCG; QW; SC
     Route: 058
     Dates: start: 20080205, end: 20080212
  3. PEG-INTRON [Suspect]
     Indication: HEPATITIS B
     Dosage: 60 MCG; QW; SC, 30 MCG; QW; SC, 60 MCG; QW; SC
     Route: 058
     Dates: start: 20080219

REACTIONS (3)
  - FATIGUE [None]
  - JAUNDICE [None]
  - OCULAR ICTERUS [None]
